FAERS Safety Report 4453653-6 (Version None)
Quarter: 2004Q3

REPORT INFORMATION
  Report Type: 
  Country: None (occurrence: None)
  Receive Date: 20040920
  Receipt Date: 20040909
  Transmission Date: 20050211
  Serious: Yes (Hospitalization)
  Sender: FDA-Public Use
  Company Number: GB-BRISTOL-MYERS SQUIBB COMPANY-12697355

PATIENT
  Age: 66 Year
  Sex: Male
  Weight: 68 kg

DRUGS (4)
  1. CARBOPLATIN [Suspect]
     Indication: NON-SMALL CELL LUNG CANCER
     Dosage: INITIAL DOSE: 12-MAR-2004
     Route: 042
     Dates: start: 20040716, end: 20040716
  2. GEMZAR [Suspect]
     Indication: NON-SMALL CELL LUNG CANCER
     Dosage: INITIAL DOSE: 12-MAR-2004
     Route: 042
     Dates: start: 20040716, end: 20040716
  3. PARACETAMOL [Concomitant]
     Route: 048
     Dates: start: 20040806
  4. ALBUTEROL [Concomitant]

REACTIONS (2)
  - ANAL FISSURE [None]
  - THROMBOCYTOPENIA [None]
